FAERS Safety Report 9088913 (Version 1)
Quarter: 2013Q1

REPORT INFORMATION
  Report Type: Spontaneous
  Country: KR (occurrence: KR)
  Receive Date: 20130201
  Receipt Date: 20130201
  Transmission Date: 20140127
  Serious: Yes (Hospitalization)
  Sender: FDA-Public Use
  Company Number: PHHY2012KR112816

PATIENT
  Sex: Female

DRUGS (5)
  1. TERBINAFINE [Suspect]
     Indication: ONYCHOMYCOSIS
     Dosage: 2 DF FOR ONE DAY
     Route: 048
  2. PERPHENAZINE [Interacting]
     Dosage: 4 MG
  3. LORAZEPAM [Concomitant]
     Dosage: 1 MG
  4. DIAZEPAM [Concomitant]
     Dosage: 5 MG
  5. FLURAZEPAM [Concomitant]
     Dosage: 7.5 MG

REACTIONS (9)
  - Extrapyramidal disorder [Recovering/Resolving]
  - Akathisia [Recovering/Resolving]
  - Asthenia [Recovering/Resolving]
  - Anxiety [Recovering/Resolving]
  - Insomnia [Recovering/Resolving]
  - Bradykinesia [Recovering/Resolving]
  - Depressed mood [Recovering/Resolving]
  - Gait disturbance [Recovering/Resolving]
  - Drug interaction [Unknown]
